FAERS Safety Report 5530764-5 (Version None)
Quarter: 2007Q4

REPORT INFORMATION
  Report Type: 
  Country: None (occurrence: None)
  Receive Date: 20071130
  Receipt Date: 20071120
  Transmission Date: 20080405
  Serious: Yes (Hospitalization)
  Sender: FDA-Public Use
  Company Number: DE-ELI_LILLY_AND_COMPANY-DE200711004530

PATIENT
  Age: 71 Year
  Sex: Female

DRUGS (3)
  1. TERIPARATIDE [Suspect]
     Dosage: UNK, UNKNOWN
     Route: 058
  2. CALCIUM D3 [Concomitant]
     Dosage: UNK, UNKNOWN
  3. TILIDINE [Concomitant]
     Dosage: UNK, UNKNOWN

REACTIONS (7)
  - ABDOMINAL PAIN UPPER [None]
  - ASTHENIA [None]
  - GASTROINTESTINAL DISORDER [None]
  - INSOMNIA [None]
  - NAUSEA [None]
  - PAIN IN EXTREMITY [None]
  - VOMITING [None]
